FAERS Safety Report 5723478-X (Version None)
Quarter: 2008Q2

REPORT INFORMATION
  Report Type: 
  Country: None (occurrence: None)
  Receive Date: 20080430
  Receipt Date: 20080417
  Transmission Date: 20081010
  Serious: Yes (Death)
  Sender: FDA-Public Use
  Company Number: CA-AMGEN-US273431

PATIENT
  Sex: Female

DRUGS (4)
  1. ENBREL [Suspect]
     Indication: PSORIASIS
     Dates: start: 20071003
  2. FOSAVANCE [Concomitant]
     Route: 048
  3. MIACALCIN [Concomitant]
     Route: 055
  4. CORTICOSTEROID NOS [Concomitant]
     Route: 061

REACTIONS (1)
  - DEATH [None]
